FAERS Safety Report 7457314-0 (Version None)
Quarter: 2011Q1

REPORT INFORMATION
  Report Type: 
  Country: None (occurrence: None)
  Receive Date: 20110302
  Receipt Date: 20101119
  Transmission Date: 20110831
  Serious: No
  Sender: FDA-Public Use
  Company Number: 021549

PATIENT
  Sex: Male
  Weight: 172 kg

DRUGS (4)
  1. METOPROLOL SUCCINATE [Concomitant]
  2. OXYCODONE HCL [Concomitant]
  3. CIMZIA [Suspect]
     Indication: CROHN'S DISEASE
     Dosage: (400 MG 1X/2 WEEKS SUBCUTANEOUS)
     Route: 058
     Dates: start: 20101025
  4. VITAMIN B12 NOS [Concomitant]

REACTIONS (4)
  - HEADACHE [None]
  - FATIGUE [None]
  - DIARRHOEA [None]
  - WHITE BLOOD CELL COUNT DECREASED [None]
